FAERS Safety Report 17571904 (Version 1)
Quarter: 2020Q1

REPORT INFORMATION
  Report Type: Spontaneous
  Country: US (occurrence: US)
  Receive Date: 20200317
  Receipt Date: 20200317
  Transmission Date: 20200409
  Serious: Yes (Disabling)
  Sender: FDA-Public Use
  Company Number: None

PATIENT
  Age: 84 Year
  Sex: Female
  Weight: 61.69 kg

DRUGS (9)
  1. CALCIUM +D/ BIOTIN [Concomitant]
  2. ALENDRONATE SOD TAB [Suspect]
     Active Substance: ALENDRONATE SODIUM
     Indication: OSTEOPOROSIS
     Route: 048
     Dates: start: 20190522, end: 20190610
  3. RESTASIS [Concomitant]
     Active Substance: CYCLOSPORINE
  4. LUMIGAN [Concomitant]
     Active Substance: BIMATOPROST
  5. CANDESARTAN. [Concomitant]
     Active Substance: CANDESARTAN
  6. METFORMIN [Concomitant]
     Active Substance: METFORMIN HYDROCHLORIDE
  7. HYDROCHLOROTHIAZIDE. [Concomitant]
     Active Substance: HYDROCHLOROTHIAZIDE
  8. SYNTHROID [Concomitant]
     Active Substance: LEVOTHYROXINE SODIUM
  9. BABY ASPIRIN [Concomitant]
     Active Substance: ASPIRIN

REACTIONS (4)
  - Pain in extremity [None]
  - Tendonitis [None]
  - Tendon rupture [None]
  - Bone pain [None]

NARRATIVE: CASE EVENT DATE: 20190522
